FAERS Safety Report 14916463 (Version 2)
Quarter: 2018Q2

REPORT INFORMATION
  Report Type: Spontaneous
  Country: US (occurrence: US)
  Receive Date: 20180519
  Receipt Date: 20180531
  Transmission Date: 20180711
  Serious: Yes (Life-Threatening, Hospitalization, Other)
  Sender: FDA-Public Use
  Company Number: US-ACCORD-067073

PATIENT
  Age: 25 Year
  Sex: Female
  Weight: 111 kg

DRUGS (2)
  1. LAMOTRIGINE. [Suspect]
     Active Substance: LAMOTRIGINE
     Dosage: 100 MG TABLETS
  2. ESCITALOPRAM [Suspect]
     Active Substance: ESCITALOPRAM OXALATE
     Dosage: 20 MG TABLETS

REACTIONS (3)
  - Overdose [Unknown]
  - Serotonin syndrome [Unknown]
  - Bundle branch block left [Recovered/Resolved]
